FAERS Safety Report 5528771-1 (Version None)
Quarter: 2007Q4

REPORT INFORMATION
  Report Type: 
  Country: None (occurrence: None)
  Receive Date: 20071129
  Receipt Date: 20071120
  Transmission Date: 20080405
  Serious: Yes (Hospitalization)
  Sender: FDA-Public Use
  Company Number: JP-NOVOPROD-269225

PATIENT
  Age: 56 Year
  Sex: Male
  Weight: 53 kg

DRUGS (7)
  1. NOVORAPID CHU FLEXPEN [Suspect]
     Indication: INSULIN-REQUIRING TYPE II DIABETES MELLITUS
     Dosage: 11 IU, QD
     Route: 058
     Dates: start: 20071019
  2. CONIEL [Concomitant]
     Dosage: 2 MG, QD
     Route: 048
     Dates: start: 20060315, end: 20071029
  3. LAPRAZOL [Concomitant]
     Dosage: 15 MG, QD
     Route: 048
     Dates: start: 20050912, end: 20071029
  4. VOGLIBOSE [Concomitant]
     Dosage: .9 MG, QD
     Route: 048
     Dates: start: 20070615, end: 20071029
  5. AMARYL [Concomitant]
     Dosage: 4 MG, QD
     Route: 048
     Dates: start: 20050808, end: 20071029
  6. NELBIS [Concomitant]
     Dosage: 750 MG, QD
     Route: 048
     Dates: start: 20070620, end: 20071029
  7. MUCOSOLATE [Concomitant]
     Dosage: 45 MG, QD
     Route: 048
     Dates: start: 20071009, end: 20071029

REACTIONS (2)
  - CHOLELITHIASIS [None]
  - JAUNDICE [None]
